FAERS Safety Report 12671681 (Version 1)
Quarter: 2016Q3

REPORT INFORMATION
  Report Type: Spontaneous
  Country: US (occurrence: US)
  Receive Date: 20160822
  Receipt Date: 20160822
  Transmission Date: 20161109
  Serious: No
  Sender: FDA-Public Use
  Company Number: US-JNJFOC-20160711047

PATIENT
  Age: 69 Year
  Sex: Female
  Weight: 40.82 kg

DRUGS (1)
  1. DARZALEX [Suspect]
     Active Substance: DARATUMUMAB
     Indication: PLASMA CELL MYELOMA
     Route: 042
     Dates: start: 201605

REACTIONS (1)
  - Electrophoresis abnormal [Unknown]

NARRATIVE: CASE EVENT DATE: 20160621
